FAERS Safety Report 4551368-7 (Version None)
Quarter: 2005Q1

REPORT INFORMATION
  Report Type: 
  Country: None (occurrence: None)
  Receive Date: 20050110
  Receipt Date: 20050104
  Transmission Date: 20050727
  Serious: Yes (Hospitalization)
  Sender: FDA-Public Use
  Company Number: 003846

PATIENT
  Age: 35 Year
  Sex: Female

DRUGS (2)
  1. METHYLPREDNISOLONE [Suspect]
     Indication: BACK PAIN
     Dosage: ORAL
     Route: 048
     Dates: start: 20041230, end: 20041230
  2. RELACORE (RELACORE) [Suspect]

REACTIONS (3)
  - DRUG INTERACTION [None]
  - DYSARTHRIA [None]
  - MYOPATHY STEROID [None]
